FAERS Safety Report 25826766 (Version 1)
Quarter: 2025Q3

REPORT INFORMATION
  Report Type: Spontaneous
  Country: US (occurrence: US)
  Receive Date: 20250920
  Receipt Date: 20250920
  Transmission Date: 20251021
  Serious: No
  Sender: ACCORD
  Company Number: US-Coherus Biosciences, Inc.-2024-COH-US000307

PATIENT
  Age: 73 Year
  Sex: Female

DRUGS (1)
  1. UDENYCA [Suspect]
     Active Substance: PEGFILGRASTIM-CBQV
     Indication: Chemotherapy
     Dosage: 6 MG, Q3WEEKS
     Route: 058
     Dates: start: 20240403

REACTIONS (3)
  - Device malfunction [Recovered/Resolved]
  - No adverse event [Unknown]
  - Device malfunction [Recovered/Resolved]

NARRATIVE: CASE EVENT DATE: 20240425
